FAERS Safety Report 15557033 (Version 1)
Quarter: 2018Q4

REPORT INFORMATION
  Report Type: Spontaneous
  Country: IN (occurrence: IN)
  Receive Date: 20181026
  Receipt Date: 20181026
  Transmission Date: 20190205
  Serious: Yes (Other)
  Sender: FDA-Public Use
  Company Number: IN-ENDO PHARMACEUTICALS INC-2018-042459

PATIENT
  Age: 60 Year
  Sex: Male

DRUGS (1)
  1. TRAVOPROST. [Suspect]
     Active Substance: TRAVOPROST
     Indication: OPEN ANGLE GLAUCOMA
     Dosage: UNK UNKNOWN, QHS
     Route: 047

REACTIONS (1)
  - Detachment of retinal pigment epithelium [Recovered/Resolved]
